FAERS Safety Report 4801966-8 (Version None)
Quarter: 2005Q4

REPORT INFORMATION
  Report Type: 
  Country: None (occurrence: None)
  Receive Date: 20051006
  Receipt Date: 20051006
  Transmission Date: 20060501
  Serious: Yes (Life-Threatening, Hospitalization, Other)
  Sender: FDA-Public Use
  Company Number: None

PATIENT
  Age: 9 Year
  Sex: Male
  Weight: 49.8957 kg

DRUGS (1)
  1. STRATTERA [Suspect]
     Indication: ATTENTION DEFICIT/HYPERACTIVITY DISORDER
     Dosage: 1 CAPSULE    TWICE DAILY  PO
     Route: 048
     Dates: start: 20031201, end: 20051005

REACTIONS (6)
  - AGGRESSION [None]
  - CHROMATURIA [None]
  - INJURY ASPHYXIATION [None]
  - IRRITABILITY [None]
  - MOOD ALTERED [None]
  - SELF INJURIOUS BEHAVIOUR [None]
